FAERS Safety Report 19004999 (Version 1)
Quarter: 2021Q1

REPORT INFORMATION
  Report Type: Spontaneous
  Country: PL (occurrence: PL)
  Receive Date: 20210312
  Receipt Date: 20210312
  Transmission Date: 20210420
  Serious: Yes (Hospitalization)
  Sender: FDA-Public Use
  Company Number: NVSC2021PL052472

PATIENT
  Age: 69 Year
  Sex: Female

DRUGS (2)
  1. LETROZOLE. [Concomitant]
     Active Substance: LETROZOLE
     Indication: PRODUCT USED FOR UNKNOWN INDICATION
     Dosage: UNK
     Route: 065
  2. KISQALI [Suspect]
     Active Substance: RIBOCICLIB
     Indication: HER2 POSITIVE BREAST CANCER
     Dosage: 600 MG
     Route: 065
     Dates: start: 20210222

REACTIONS (2)
  - Torsade de pointes [Recovered/Resolved]
  - Electrocardiogram QT prolonged [Recovered/Resolved]
